FAERS Safety Report 16786169 (Version 1)
Quarter: 2019Q4

REPORT INFORMATION
  Report Type: Spontaneous
  Country: US (occurrence: US)
  Receive Date: 20190907
  Receipt Date: 20190907
  Transmission Date: 20200122
  Serious: No
  Sender: FDA-Public Use
  Company Number: None

PATIENT
  Age: 29 Year
  Sex: Female
  Weight: 63.5 kg

DRUGS (3)
  1. BACLOFEN. [Concomitant]
     Active Substance: BACLOFEN
  2. NEXPLANON [Suspect]
     Active Substance: ETONOGESTREL
  3. CHARCOAL [Concomitant]
     Active Substance: ACTIVATED CHARCOAL

REACTIONS (13)
  - Anger [None]
  - Nausea [None]
  - Haemorrhage [None]
  - Mood swings [None]
  - Hot flush [None]
  - Anxiety [None]
  - Palpitations [None]
  - Depressed mood [None]
  - Chest pain [None]
  - Vomiting [None]
  - Diarrhoea [None]
  - Abdominal pain upper [None]
  - Migraine [None]

NARRATIVE: CASE EVENT DATE: 20190904
